FAERS Safety Report 6965766-5 (Version None)
Quarter: 2010Q3

REPORT INFORMATION
  Report Type: 
  Country: None (occurrence: None)
  Receive Date: 20100903
  Receipt Date: 20100826
  Transmission Date: 20110219
  Serious: Yes (Other)
  Sender: FDA-Public Use
  Company Number: US-ROCHE-724059

PATIENT
  Sex: Female
  Weight: 96 kg

DRUGS (15)
  1. BEVACIZUMAB [Suspect]
     Indication: BREAST CANCER
     Dosage: TOTAL DOSE: 1530 MG.  FORM: VIALS. THE LAST DOSE PRIOR TO SAE: 15 JULY 2010.
     Route: 042
     Dates: start: 20100128, end: 20100804
  2. TRASTUZUMAB [Suspect]
     Indication: BREAST CANCER
     Dosage: FORM: VIALS
     Route: 042
     Dates: start: 20100128
  3. TRASTUZUMAB [Suspect]
     Route: 042
     Dates: start: 20100218
  4. CARBOPLATIN [Suspect]
     Indication: BREAST CANCER
     Dosage: DOSE: 6 AUC.  TOTAL DOSE: 770 MG.  FORM: VIALS. THE LAST DOSE PRIOR TO SAE: 13 MAY 2010
     Route: 042
     Dates: start: 20100128
  5. DOCETAXEL [Suspect]
     Indication: BREAST CANCER
     Dosage: FORM: VIALS.  TOTAL DOSE: 160 MG.  THE LAST DOSE PRIOR TO SAE: 13 MAY 2010
     Route: 042
     Dates: start: 20100128
  6. METFORMIN [Concomitant]
     Dates: start: 20070609
  7. OMEPRAZOLE [Concomitant]
     Dates: start: 20010101
  8. GLIMEPIRIDE [Concomitant]
     Dates: start: 20100219
  9. LISINOPRIL [Concomitant]
     Dosage: 20 MG QAM
     Dates: start: 20100219
  10. LISINOPRIL [Concomitant]
     Dosage: 20 MG QAM, 10 MG QPM
     Dates: start: 20100401
  11. LACTIC ACID [Concomitant]
     Dosage: AS NEEDED.
     Dates: start: 20100421
  12. RESTASIS [Concomitant]
     Dosage: FREQUENCY: BID.
     Dates: start: 20100525
  13. ARIMIDEX [Concomitant]
     Dates: start: 20100626
  14. LOTEMAX [Concomitant]
     Dates: start: 20100525, end: 20100630
  15. ARTIFICIAL TEARS NOS [Concomitant]
     Dates: start: 20100525

REACTIONS (2)
  - ENTROPION [None]
  - KERATOCONJUNCTIVITIS SICCA [None]
